FAERS Safety Report 19127532 (Version 1)
Quarter: 2021Q2

REPORT INFORMATION
  Report Type: Spontaneous
  Country: US (occurrence: US)
  Receive Date: 20210413
  Receipt Date: 20210413
  Transmission Date: 20210717
  Serious: No
  Sender: FDA-Public Use
  Company Number: None

PATIENT
  Age: 22 Year
  Sex: Female

DRUGS (1)
  1. GUANFACINE EXTENDED RELEASE [Suspect]
     Active Substance: GUANFACINE
     Route: 048
     Dates: start: 20210301, end: 20210330

REACTIONS (3)
  - Somnolence [None]
  - Nervousness [None]
  - Dizziness [None]

NARRATIVE: CASE EVENT DATE: 20210301
